FAERS Safety Report 18095514 (Version 2)
Quarter: 2020Q4

REPORT INFORMATION
  Report Type: Report from Study
  Country: IT (occurrence: IT)
  Receive Date: 20200730
  Receipt Date: 20201005
  Transmission Date: 20210113
  Serious: Yes (Other)
  Sender: FDA-Public Use
  Company Number: IT-NEUROCRINE BIOSCIENCES INC.-2020NBI02678

PATIENT
  Age: 72 Year
  Sex: Female

DRUGS (2)
  1. OPICAPONE [Suspect]
     Active Substance: OPICAPONE
     Indication: ON AND OFF PHENOMENON
     Dosage: UNKNOWN
     Route: 065
  2. MADOPAR [Suspect]
     Active Substance: BENSERAZIDE HYDROCHLORIDE\LEVODOPA
     Indication: ON AND OFF PHENOMENON
     Dosage: LEVODOPA DOSAGE: 200 (NO UNIT PROVIDED), UNKNOWN
     Route: 065

REACTIONS (14)
  - Dysphonia [Unknown]
  - Fatigue [Unknown]
  - Muscle rigidity [Unknown]
  - Freezing phenomenon [Unknown]
  - Delusion [Unknown]
  - Gait disturbance [Unknown]
  - Reduced facial expression [Unknown]
  - Saliva altered [Unknown]
  - Therapeutic response shortened [Unknown]
  - Dysphagia [Unknown]
  - Dystonia [Unknown]
  - Hallucination [Unknown]
  - Anxiety [Unknown]
  - Confusional state [Unknown]
